FAERS Safety Report 6044006-8 (Version None)
Quarter: 2009Q1

REPORT INFORMATION
  Report Type: 
  Country: None (occurrence: None)
  Receive Date: 20090120
  Receipt Date: 20090116
  Transmission Date: 20090719
  Serious: Yes (Death)
  Sender: FDA-Public Use
  Company Number: US-EISAI MEDIAL RESEARCH-M7002-00006-CLI-US

PATIENT
  Sex: Female
  Weight: 61 kg

DRUGS (9)
  1. ONTAK [Suspect]
     Indication: T-CELL LYMPHOMA
     Route: 041
     Dates: end: 20070731
  2. VINCRISTINE SULFATE [Concomitant]
     Indication: T-CELL LYMPHOMA
     Route: 041
     Dates: start: 20070801, end: 20070801
  3. DOXORUBICIN HCL [Concomitant]
     Indication: T-CELL LYMPHOMA
     Route: 041
     Dates: start: 20070801, end: 20070801
  4. CYTOXAN [Concomitant]
     Indication: T-CELL LYMPHOMA
     Route: 041
     Dates: start: 20070801, end: 20070801
  5. PREDNISONE [Concomitant]
     Indication: T-CELL LYMPHOMA
     Route: 048
     Dates: start: 20070801, end: 20070805
  6. LIPITOR [Concomitant]
     Indication: HYPERCHOLESTEROLAEMIA
     Route: 048
     Dates: start: 20070227
  7. LISINOPRIL [Concomitant]
     Indication: HYPERTENSION
     Route: 048
     Dates: start: 20070525
  8. HYDROCHLOROTHIAZIDE [Concomitant]
     Indication: HYPERTENSION
     Route: 048
     Dates: start: 20070627
  9. NEULASTA [Concomitant]
     Dates: start: 20070802

REACTIONS (2)
  - BLOOD CREATINE PHOSPHOKINASE INCREASED [None]
  - TUMOUR LYSIS SYNDROME [None]
